FAERS Safety Report 9203136 (Version 1)
Quarter: 2013Q1

REPORT INFORMATION
  Report Type: Spontaneous
  Country: US (occurrence: None)
  Receive Date: 20130329
  Receipt Date: 20130329
  Transmission Date: 20140127
  Serious: Yes (Death)
  Sender: FDA-Public Use
  Company Number: 2013SUN00392

PATIENT
  Age: 56 Year
  Sex: Female

DRUGS (1)
  1. DOXORUBICIN HYDROCHLORIDE [Suspect]
     Indication: ENDOMETRIAL CANCER
     Dosage: 3924 MG, CUMULATIVE DOSE

REACTIONS (3)
  - Mucosal inflammation [None]
  - Tooth extraction [None]
  - Lip and/or oral cavity cancer [None]
